FAERS Safety Report 16914180 (Version 2)
Quarter: 2019Q4

REPORT INFORMATION
  Report Type: Report from Study
  Country: US (occurrence: US)
  Receive Date: 20191014
  Receipt Date: 20191025
  Transmission Date: 20200122
  Serious: Yes (Death)
  Sender: FDA-Public Use
  Company Number: US-ROCHE-2429430

PATIENT
  Age: 88 Year
  Sex: Female

DRUGS (2)
  1. RITUXAN [Suspect]
     Active Substance: RITUXIMAB
     Indication: INFECTIOUS MONONUCLEOSIS
     Route: 042
  2. RITUXAN [Suspect]
     Active Substance: RITUXIMAB
     Indication: HISTIOCYTOSIS
     Dosage: VIAL
     Route: 042

REACTIONS (4)
  - Intentional product use issue [Unknown]
  - Cardiac failure congestive [Fatal]
  - Off label use [Unknown]
  - Cardio-respiratory arrest [Fatal]

NARRATIVE: CASE EVENT DATE: 20191001
